FAERS Safety Report 12034848 (Version 1)
Quarter: 2016Q1

REPORT INFORMATION
  Report Type: Report from Study
  Country: US (occurrence: US)
  Receive Date: 20160207
  Receipt Date: 20160207
  Transmission Date: 20160526
  Serious: No
  Sender: FDA-Public Use
  Company Number: US-ABBVIE-15K-163-1520652-00

PATIENT
  Age: 67 Year
  Sex: Male

DRUGS (3)
  1. PREDNISONE. [Concomitant]
     Active Substance: PREDNISONE
     Indication: PRODUCT USED FOR UNKNOWN INDICATION
     Dosage: WEANED
     Dates: end: 20151104
  2. HUMIRA [Suspect]
     Active Substance: ADALIMUMAB
     Indication: CROHN^S DISEASE
     Route: 058
     Dates: start: 20150930
  3. GABAPENTIN. [Concomitant]
     Active Substance: GABAPENTIN
     Indication: PRODUCT USED FOR UNKNOWN INDICATION

REACTIONS (12)
  - Myalgia [Unknown]
  - Hypoaesthesia [Unknown]
  - Insomnia [Unknown]
  - Syncope [Unknown]
  - Paraesthesia [Unknown]
  - Fear [Unknown]
  - Anxiety [Unknown]
  - General physical health deterioration [Unknown]
  - Wheezing [Unknown]
  - Arthralgia [Unknown]
  - Headache [Recovered/Resolved]
  - Rectal haemorrhage [Unknown]

NARRATIVE: CASE EVENT DATE: 2015
